FAERS Safety Report 7425467-6 (Version None)
Quarter: 2011Q2

REPORT INFORMATION
  Report Type: 
  Country: None (occurrence: None)
  Receive Date: 20110412
  Receipt Date: 20110328
  Transmission Date: 20111010
  Serious: Yes (Hospitalization, Other)
  Sender: FDA-Public Use
  Company Number: 2011P1005480

PATIENT
  Age: 23 Year
  Sex: Male

DRUGS (1)
  1. LAMOTRIGINE [Suspect]

REACTIONS (8)
  - PYREXIA [None]
  - DERMATITIS CONTACT [None]
  - INFLAMMATION [None]
  - ERYTHEMA MULTIFORME [None]
  - RASH GENERALISED [None]
  - LOSS OF CONSCIOUSNESS [None]
  - MALAISE [None]
  - CHILLS [None]
